FAERS Safety Report 10254101 (Version 1)
Quarter: 2014Q2

REPORT INFORMATION
  Report Type: Spontaneous
  Country: CN (occurrence: CN)
  Receive Date: 20140623
  Receipt Date: 20140623
  Transmission Date: 20141212
  Serious: Yes (Disabling)
  Sender: FDA-Public Use
  Company Number: CN-009507513-1406CHN009781

PATIENT
  Age: 88 Year
  Sex: Female
  Weight: 57 kg

DRUGS (4)
  1. LORATADINE [Suspect]
     Indication: DERMATITIS
     Dosage: 10 MG, QD
     Route: 041
     Dates: start: 20130702, end: 20130711
  2. METHYLPREDNISOLONE [Suspect]
     Indication: DERMATITIS
     Dosage: 40 MG, BID
     Route: 042
     Dates: start: 20130629, end: 20130705
  3. METHYLPREDNISOLONE [Suspect]
     Dosage: 60 MG, QD
     Route: 042
     Dates: start: 20130706, end: 20130709
  4. METHYLPREDNISOLONE [Suspect]
     Dosage: 40 MG, QD
     Route: 042
     Dates: start: 20130710

REACTIONS (1)
  - Hepatic function abnormal [Recovering/Resolving]
